FAERS Safety Report 19575461 (Version 1)
Quarter: 2021Q3

REPORT INFORMATION
  Report Type: Spontaneous
  Country: FR (occurrence: FR)
  Receive Date: 20210719
  Receipt Date: 20210719
  Transmission Date: 20211014
  Serious: Yes (Other)
  Sender: FDA-Public Use
  Company Number: FR-TEVA-2021-FR-1932620

PATIENT
  Age: 28 Year
  Sex: Female

DRUGS (1)
  1. AIROMIR AUTOHALER [Suspect]
     Active Substance: ALBUTEROL SULFATE
     Indication: ASTHMA
     Dosage: 100 MICROGRAMS/DOSE, 2 INTAKES IF BREATHIES DIFFICULTIES TO REPEAT IF NECESSARY A FEW MINUTES LATER
     Route: 055

REACTIONS (2)
  - Drug ineffective [Unknown]
  - Asthmatic crisis [Recovered/Resolved]
